FAERS Safety Report 10671013 (Version 1)
Quarter: 2014Q4

REPORT INFORMATION
  Report Type: Spontaneous
  Country: US (occurrence: None)
  Receive Date: 20141219
  Receipt Date: 20141219
  Transmission Date: 20150529
  Serious: Yes (Other)
  Sender: FDA-Public Use
  Company Number: IDR-00941

PATIENT
  Age: 27 Year
  Sex: Female

DRUGS (11)
  1. LAMICTAL [Concomitant]
     Active Substance: LAMOTRIGINE
  2. NEURONTIN [Concomitant]
     Active Substance: GABAPENTIN
  3. INDERAL LA [Suspect]
     Active Substance: PROPRANOLOL HYDROCHLORIDE
     Indication: MIGRAINE
     Dosage: TWO 80 MG CAPSULES
     Route: 048
     Dates: start: 201411, end: 20141204
  4. PREDNISONE. [Concomitant]
     Active Substance: PREDNISONE
  5. NEXIUM [Concomitant]
     Active Substance: ESOMEPRAZOLE MAGNESIUM
  6. VITAMIN D3 [Concomitant]
     Active Substance: CHOLECALCIFEROL
  7. MAGNESIUM [Concomitant]
     Active Substance: MAGNESIUM
  8. TOPAMAX [Concomitant]
     Active Substance: TOPIRAMATE
  9. GEODON [Concomitant]
     Active Substance: ZIPRASIDONE HYDROCHLORIDE\ZIPRASIDONE MESYLATE
  10. BUSPAR (BUSPIRONE) [Concomitant]
  11. VITAMIN D [Concomitant]
     Active Substance: CHOLECALCIFEROL

REACTIONS (8)
  - Dyspnoea [None]
  - Chest pain [None]
  - Hearing impaired [None]
  - Shock [None]
  - Unresponsive to stimuli [None]
  - Migraine [None]
  - Feeling abnormal [None]
  - Urinary incontinence [None]

NARRATIVE: CASE EVENT DATE: 20141203
